FAERS Safety Report 18864891 (Version 4)
Quarter: 2021Q2

REPORT INFORMATION
  Report Type: Spontaneous
  Country: DE (occurrence: DE)
  Receive Date: 20210208
  Receipt Date: 20210411
  Transmission Date: 20210717
  Serious: Yes (Other)
  Sender: FDA-Public Use
  Company Number: DE-BIOGEN-2021BI00975510

PATIENT
  Age: 39 Year
  Sex: Female
  Weight: 60 kg

DRUGS (4)
  1. AVONEX PEN [Suspect]
     Active Substance: INTERFERON BETA-1A
  2. AVONEX PEN [Suspect]
     Active Substance: INTERFERON BETA-1A
  3. AVONEX PEN [Suspect]
     Active Substance: INTERFERON BETA-1A
  4. AVONEX PEN [Suspect]
     Active Substance: INTERFERON BETA-1A
     Indication: MULTIPLE SCLEROSIS
     Route: 030
     Dates: start: 20200904

REACTIONS (8)
  - Abdominal pain [Unknown]
  - Anaemia [Unknown]
  - Gestational diabetes [Unknown]
  - Vaginal haemorrhage [Unknown]
  - Maternal exposure during pregnancy [Recovered/Resolved]
  - Vulvovaginitis streptococcal [Unknown]
  - Abortion spontaneous [Recovered/Resolved]
  - Abnormal cord insertion [Unknown]

NARRATIVE: CASE EVENT DATE: 20201116
